FAERS Safety Report 10994227 (Version 2)
Quarter: 2015Q2

REPORT INFORMATION
  Report Type: Spontaneous
  Country: GR (occurrence: GR)
  Receive Date: 20150407
  Receipt Date: 20150407
  Transmission Date: 20150821
  Serious: Yes (Hospitalization, Other)
  Sender: FDA-Public Use
  Company Number: GR-ACTAVIS-2015-06647

PATIENT
  Age: 73 Year
  Sex: Male

DRUGS (4)
  1. BUDESONIDE (UNKNOWN) [Suspect]
     Active Substance: BUDESONIDE
     Indication: PSORIASIS
     Dosage: 400 G, CYCLICAL (MONTHLY)
     Route: 003
  2. PANTHENOL [Concomitant]
     Active Substance: PANTHENOL
     Indication: PSORIASIS
     Dosage: UNK
     Route: 003
  3. BETAMETHASONE [Suspect]
     Active Substance: BETAMETHASONE
     Indication: PSORIASIS
     Dosage: 250 G, CYCLICAL (MONTHLY)
     Route: 003
  4. CLOBETASOL [Suspect]
     Active Substance: CLOBETASOL
     Indication: PSORIASIS
     Dosage: 250 MG, CYCLICAL (MONTHLY)
     Route: 003

REACTIONS (2)
  - Kaposi^s sarcoma [Recovering/Resolving]
  - Intentional product misuse [Unknown]
